FAERS Safety Report 7347758-X (Version None)
Quarter: 2011Q1

REPORT INFORMATION
  Report Type: 
  Country: None (occurrence: None)
  Receive Date: 20110222
  Receipt Date: 20100910
  Transmission Date: 20110831
  Serious: Yes (Life-Threatening, Hospitalization)
  Sender: FDA-Public Use
  Company Number: 2009021426

PATIENT
  Sex: Male
  Weight: 57.6 kg

DRUGS (15)
  1. VIVAGLOBIN [Suspect]
     Indication: IMMUNODEFICIENCY COMMON VARIABLE
     Dosage: 50 ML, 50 ML WEEKLY OVER 2 HOURS SUBCUTANEOUS, 50 ML SUBCUTANEOUS
     Route: 058
     Dates: start: 20061001
  2. VIVAGLOBIN [Suspect]
     Indication: IMMUNODEFICIENCY COMMON VARIABLE
     Dosage: 50 ML, 50 ML WEEKLY OVER 2 HOURS SUBCUTANEOUS, 50 ML SUBCUTANEOUS
     Route: 058
     Dates: start: 20061001, end: 20091124
  3. XOPENEX [Concomitant]
  4. ALBUTEROL [Concomitant]
  5. SINGULAIR [Concomitant]
  6. ACYCLOVIR [Concomitant]
  7. NEURONTIN [Concomitant]
  8. TYLENOL WITH CODEINE (PANADEINE CO) [Concomitant]
  9. COLCHICINE [Concomitant]
  10. VIVAGLOBIN [Suspect]
  11. B COMPLEX VITAMIN (CYANOCOBALAMIN) [Concomitant]
  12. ADVAIR HFA [Concomitant]
  13. MOBIC [Concomitant]
  14. AMOXICILLIN [Concomitant]
  15. PREVACID [Concomitant]

REACTIONS (6)
  - DYSPNOEA [None]
  - AGITATION [None]
  - THROAT TIGHTNESS [None]
  - RASH ERYTHEMATOUS [None]
  - PYREXIA [None]
  - RASH MACULAR [None]
